FAERS Safety Report 12730200 (Version 2)
Quarter: 2016Q3

REPORT INFORMATION
  Report Type: Spontaneous
  Country: JP (occurrence: JP)
  Receive Date: 20160909
  Receipt Date: 20160921
  Transmission Date: 20161109
  Serious: Yes (Death, Hospitalization)
  Sender: FDA-Public Use
  Company Number: JP-SA-2016SA167545

PATIENT
  Age: 51 Year
  Sex: Male
  Weight: 60 kg

DRUGS (10)
  1. BEVACIZUMAB [Suspect]
     Active Substance: BEVACIZUMAB
     Indication: RECTAL CANCER
     Route: 042
     Dates: start: 2015, end: 2015
  2. 5-FU [Concomitant]
     Active Substance: FLUOROURACIL
     Indication: RECTAL CANCER
     Dosage: 663.6 MG/BODY (400 MG/M2)
     Route: 040
     Dates: start: 2015, end: 2015
  3. 5-FU [Concomitant]
     Active Substance: FLUOROURACIL
     Indication: RECTAL CANCER
     Dosage: 3981.6 MG/BODY/D1-2 (2400 MG/M2/D1-2)
     Route: 041
     Dates: start: 2015, end: 2015
  4. 5-FU [Concomitant]
     Active Substance: FLUOROURACIL
     Indication: RECTAL CANCER
     Route: 041
     Dates: start: 2015, end: 2015
  5. BEVACIZUMAB [Suspect]
     Active Substance: BEVACIZUMAB
     Indication: RECTAL CANCER
     Route: 042
     Dates: start: 2015, end: 2015
  6. ELPLAT [Suspect]
     Active Substance: OXALIPLATIN
     Indication: RECTAL CANCER
     Route: 041
     Dates: start: 2015, end: 2015
  7. CALCIUM LEVOFOLINATE [Concomitant]
     Active Substance: LEVOLEUCOVORIN CALCIUM
     Indication: RECTAL CANCER
     Dosage: 331.8 MG/BODY (200 MG/M2)
     Route: 042
     Dates: start: 2015, end: 2015
  8. CALCIUM LEVOFOLINATE [Concomitant]
     Active Substance: LEVOLEUCOVORIN CALCIUM
     Indication: RECTAL CANCER
     Route: 042
     Dates: start: 2015, end: 2015
  9. 5-FU [Concomitant]
     Active Substance: FLUOROURACIL
     Indication: RECTAL CANCER
     Route: 040
     Dates: start: 2015, end: 2015
  10. ELPLAT [Suspect]
     Active Substance: OXALIPLATIN
     Indication: RECTAL CANCER
     Dosage: 141 MG/BODY (85 MG/M2)
     Route: 041
     Dates: start: 2015, end: 2015

REACTIONS (5)
  - Small intestinal perforation [Unknown]
  - Necrotising fasciitis [Unknown]
  - Pneumonia [Fatal]
  - Bone pain [Unknown]
  - Musculoskeletal pain [Unknown]
